FAERS Safety Report 10810725 (Version 1)
Quarter: 2015Q1

REPORT INFORMATION
  Report Type: Report from Study
  Country: US (occurrence: US)
  Receive Date: 20150217
  Receipt Date: 20150217
  Transmission Date: 20150721
  Serious: No
  Sender: FDA-Public Use
  Company Number: US-ABBVIE-14K-163-1231877-00

PATIENT
  Age: 16 Year
  Sex: Female

DRUGS (5)
  1. HUMIRA [Suspect]
     Active Substance: ADALIMUMAB
     Indication: CROHN^S DISEASE
     Dates: start: 201202, end: 201205
  2. HUMIRA [Suspect]
     Active Substance: ADALIMUMAB
     Dosage: ONE PEN
     Dates: start: 20140411, end: 20140411
  3. IMURAN [Suspect]
     Active Substance: AZATHIOPRINE
     Indication: CROHN^S DISEASE
     Dates: start: 201205
  4. HUMIRA [Suspect]
     Active Substance: ADALIMUMAB
     Dates: start: 20140418, end: 20140418
  5. HUMIRA [Suspect]
     Active Substance: ADALIMUMAB
     Dosage: ONE PEN
     Dates: start: 20140425

REACTIONS (6)
  - Drug ineffective [Unknown]
  - Injection site extravasation [Unknown]
  - Malaise [Unknown]
  - Injection site pain [Not Recovered/Not Resolved]
  - Device issue [Unknown]
  - Incorrect dose administered [Unknown]

NARRATIVE: CASE EVENT DATE: 2012
